FAERS Safety Report 8590082-8 (Version None)
Quarter: 2012Q3

REPORT INFORMATION
  Report Type: 
  Country: None (occurrence: None)
  Receive Date: 20120813
  Receipt Date: 20120809
  Transmission Date: 20120928
  Serious: Yes (Other)
  Sender: FDA-Public Use
  Company Number: CA-ROCHE-1100161

PATIENT
  Sex: Male

DRUGS (3)
  1. XELODA [Suspect]
     Indication: GASTROOESOPHAGEAL CANCER
     Route: 048
     Dates: start: 20110101, end: 20120301
  2. RABEPRAZOLE SODIUM [Concomitant]
  3. XELODA [Suspect]
     Dates: start: 20120809

REACTIONS (3)
  - WEIGHT DECREASED [None]
  - APHAGIA [None]
  - MALAISE [None]
